FAERS Safety Report 15496458 (Version 1)
Quarter: 2018Q4

REPORT INFORMATION
  Report Type: Spontaneous
  Country: JP (occurrence: JP)
  Receive Date: 20181012
  Receipt Date: 20181012
  Transmission Date: 20190205
  Serious: Yes (Other)
  Sender: FDA-Public Use
  Company Number: JP-009507513-1810JPN000960J

PATIENT
  Age: 8 Decade
  Sex: Female
  Weight: 30 kg

DRUGS (2)
  1. ESLAX INTRAVENOUS 25MG/2.5ML [Suspect]
     Active Substance: ROCURONIUM BROMIDE
     Indication: NEUROMUSCULAR BLOCKING THERAPY
     Dosage: 30MG/H
     Route: 042
     Dates: start: 201810, end: 201810
  2. REMIFENTANIL DAIICHI SANKYO [Concomitant]
     Indication: PAIN
     Dosage: UNK
     Route: 065

REACTIONS (2)
  - Tachypnoea [Unknown]
  - Overdose [Unknown]

NARRATIVE: CASE EVENT DATE: 20181004
